FAERS Safety Report 11896052 (Version 4)
Quarter: 2016Q2

REPORT INFORMATION
  Report Type: Spontaneous
  Country: US (occurrence: US)
  Receive Date: 20160107
  Receipt Date: 20160401
  Transmission Date: 20160815
  Serious: Yes (Other)
  Sender: FDA-Public Use
  Company Number: US-ELI_LILLY_AND_COMPANY-US201512008738

PATIENT
  Age: 50 Year
  Sex: Male
  Weight: 97.52 kg

DRUGS (7)
  1. LYRICA [Suspect]
     Active Substance: PREGABALIN
     Indication: INTERVERTEBRAL DISC PROTRUSION
     Dosage: 3 DF, AT NIGHT
     Route: 065
  2. CYMBALTA [Suspect]
     Active Substance: DULOXETINE HYDROCHLORIDE
     Dosage: 60 MG, QD
     Route: 065
  3. VICODIN [Concomitant]
     Active Substance: ACETAMINOPHEN\HYDROCODONE BITARTRATE
     Indication: PAIN
     Dosage: 2 DF, EACH MORNING
     Route: 048
     Dates: start: 2006, end: 2015
  4. VICODIN [Concomitant]
     Active Substance: ACETAMINOPHEN\HYDROCODONE BITARTRATE
     Dosage: 2 DF, AT NIGHT
     Route: 048
     Dates: start: 2006, end: 2015
  5. SINGULAIR [Concomitant]
     Active Substance: MONTELUKAST SODIUM
     Dosage: 30 MG, UNKNOWN
     Route: 065
  6. NEURONTIN [Concomitant]
     Active Substance: GABAPENTIN
     Dosage: UNK, UNKNOWN
     Route: 065
  7. CYMBALTA [Suspect]
     Active Substance: DULOXETINE HYDROCHLORIDE
     Indication: PRODUCT USED FOR UNKNOWN INDICATION
     Dosage: 30 MG, QD
     Route: 065

REACTIONS (20)
  - Amnesia [Unknown]
  - Compulsive shopping [Unknown]
  - Hypertension [Unknown]
  - Headache [Unknown]
  - Weight increased [Unknown]
  - Fatigue [Unknown]
  - Pain [Unknown]
  - Anger [Unknown]
  - Osteonecrosis [Unknown]
  - Eating disorder [Unknown]
  - Motion sickness [Unknown]
  - Vision blurred [Unknown]
  - Hyperphagia [Unknown]
  - Intervertebral disc protrusion [Unknown]
  - Insomnia [Unknown]
  - Feeling drunk [Unknown]
  - Muscle spasms [Unknown]
  - Somnolence [Unknown]
  - Sensory disturbance [Unknown]
  - Dysgraphia [Unknown]

NARRATIVE: CASE EVENT DATE: 20151214
